FAERS Safety Report 7814138-X (Version None)
Quarter: 2011Q4

REPORT INFORMATION
  Report Type: 
  Country: None (occurrence: None)
  Receive Date: 20111014
  Receipt Date: 20110930
  Transmission Date: 20120403
  Serious: Yes (Other)
  Sender: FDA-Public Use
  Company Number: US-BAYER-2011-082044

PATIENT
  Age: 17 Year
  Sex: Female
  Weight: 102 kg

DRUGS (4)
  1. IBUPROFEN [Concomitant]
     Dosage: UNK UNK, PRN
  2. YAZ [Suspect]
     Indication: CONTRACEPTION
     Dosage: UNK
     Dates: start: 20090101
  3. ZOLOFT [Concomitant]
  4. PRILOSEC [Concomitant]
     Dosage: UNK UNK, PRN

REACTIONS (5)
  - PAIN [None]
  - CHOLELITHIASIS [None]
  - INJURY [None]
  - CHOLECYSTITIS ACUTE [None]
  - GALLBLADDER DISORDER [None]
